FAERS Safety Report 14904202 (Version 2)
Quarter: 2018Q2

REPORT INFORMATION
  Report Type: Report from Study
  Country: None (occurrence: US)
  Receive Date: 20180516
  Receipt Date: 20180606
  Transmission Date: 20180711
  Serious: Yes (Hospitalization)
  Sender: FDA-Public Use
  Company Number: US-ABBVIE-18K-163-2357304-00

PATIENT
  Age: 40 Year
  Sex: Female
  Weight: 95.34 kg

DRUGS (2)
  1. HUMIRA [Suspect]
     Active Substance: ADALIMUMAB
     Indication: RHEUMATOID ARTHRITIS
     Route: 058
     Dates: start: 20180111, end: 20180317
  2. HUMIRA [Suspect]
     Active Substance: ADALIMUMAB
     Dosage: START DATE OF HUMIRA SEP-2017 OR OCT-2017
     Route: 058
     Dates: start: 2017, end: 201801

REACTIONS (7)
  - Blood glucose increased [Recovered/Resolved]
  - Hypertension [Recovered/Resolved]
  - Blood pressure increased [Unknown]
  - Transient ischaemic attack [Recovered/Resolved]
  - Blood glucose increased [Unknown]
  - Sensory disturbance [Recovered/Resolved]
  - Transient ischaemic attack [Not Recovered/Not Resolved]

NARRATIVE: CASE EVENT DATE: 201711
